FAERS Safety Report 10277789 (Version 1)
Quarter: 2014Q3

REPORT INFORMATION
  Report Type: Spontaneous
  Country: CM (occurrence: CM)
  Receive Date: 20140704
  Receipt Date: 20140704
  Transmission Date: 20150326
  Serious: Yes (Life-Threatening, Hospitalization)
  Sender: FDA-Public Use
  Company Number: CM-009507513-1407CMR000519

PATIENT
  Age: 21 Year
  Sex: Female
  Weight: 47 kg

DRUGS (6)
  1. ALBENDAZOLE [Suspect]
     Active Substance: ALBENDAZOLE
     Indication: ONCHOCERCIASIS
  2. MECTIZAN [Interacting]
     Active Substance: IVERMECTIN
     Indication: ONCHOCERCIASIS
  3. ALBENDAZOLE [Suspect]
     Active Substance: ALBENDAZOLE
     Indication: FILARIASIS LYMPHATIC
     Dosage: 1 DF, ONCE
     Route: 048
     Dates: start: 20140617, end: 20140617
  4. ALBENDAZOLE [Suspect]
     Active Substance: ALBENDAZOLE
     Indication: FILARIASIS
  5. MECTIZAN [Interacting]
     Active Substance: IVERMECTIN
     Indication: FILARIASIS
  6. MECTIZAN [Suspect]
     Active Substance: IVERMECTIN
     Indication: FILARIASIS LYMPHATIC
     Dosage: 4 DF, ONCE
     Route: 048
     Dates: start: 20140617, end: 20140617

REACTIONS (4)
  - Ocular hyperaemia [Recovered/Resolved]
  - Rash [Recovered/Resolved]
  - Headache [Recovered/Resolved]
  - Pruritus generalised [Recovered/Resolved]

NARRATIVE: CASE EVENT DATE: 20140618
